FAERS Safety Report 7626620-9 (Version None)
Quarter: 2011Q3

REPORT INFORMATION
  Report Type: 
  Country: None (occurrence: None)
  Receive Date: 20110721
  Receipt Date: 20110707
  Transmission Date: 20111222
  Serious: Yes (Other)
  Sender: FDA-Public Use
  Company Number: US-ROCHE-790025

PATIENT
  Age: 67 Year
  Sex: Male

DRUGS (1)
  1. AVASTIN [Suspect]
     Indication: RENAL CANCER
     Dosage: FREQUENCY: EVERY TWO WEEKS
     Route: 042
     Dates: start: 20110101

REACTIONS (1)
  - SPLENOMEGALY [None]
